FAERS Safety Report 13674768 (Version 3)
Quarter: 2017Q4

REPORT INFORMATION
  Report Type: Spontaneous
  Country: US (occurrence: US)
  Receive Date: 20170621
  Receipt Date: 20171214
  Transmission Date: 20180320
  Serious: No
  Sender: FDA-Public Use
  Company Number: US-PFIZER INC-2017264999

PATIENT
  Age: 72 Year
  Sex: Female
  Weight: 76.2 kg

DRUGS (2)
  1. XELJANZ XR [Suspect]
     Active Substance: TOFACITINIB CITRATE
     Dosage: 11 MG, 1X/DAY
     Route: 048
  2. XELJANZ XR [Suspect]
     Active Substance: TOFACITINIB CITRATE
     Indication: RHEUMATIC DISORDER
     Dosage: 11 MG, UNK
     Dates: end: 20171028

REACTIONS (8)
  - Chills [Unknown]
  - Headache [Unknown]
  - Cyst [Unknown]
  - Tenderness [Unknown]
  - Asthenia [Unknown]
  - Influenza [Unknown]
  - Pain [Unknown]
  - Drug ineffective [Unknown]
